FAERS Safety Report 19950320 (Version 10)
Quarter: 2023Q4

REPORT INFORMATION
  Report Type: Spontaneous
  Country: US (occurrence: US)
  Receive Date: 20211013
  Receipt Date: 20231227
  Transmission Date: 20240110
  Serious: Yes (Hospitalization, Disabling, Other)
  Sender: FDA-Public Use
  Company Number: US-ORGANON-O2110USA000985

PATIENT
  Sex: Female
  Weight: 98.685 kg

DRUGS (1)
  1. SINGULAIR [Suspect]
     Active Substance: MONTELUKAST SODIUM
     Dosage: TAKE 1 TABLET BY MOUTH EVERY DAY
     Route: 048
     Dates: start: 2000, end: 2020

REACTIONS (25)
  - Neuropsychological symptoms [Not Recovered/Not Resolved]
  - Post-traumatic stress disorder [Not Recovered/Not Resolved]
  - Suicide attempt [Unknown]
  - Sleep disorder [Not Recovered/Not Resolved]
  - Intentional self-injury [Unknown]
  - Suicidal ideation [Recovering/Resolving]
  - Major depression [Not Recovered/Not Resolved]
  - Cellulitis [Recovering/Resolving]
  - Tic [Unknown]
  - Dysphemia [Unknown]
  - Tremor [Unknown]
  - Abscess limb [Not Recovered/Not Resolved]
  - Product use issue [Unknown]
  - Migraine [Not Recovered/Not Resolved]
  - Sinusitis [Recovered/Resolved]
  - Obstructive sleep apnoea syndrome [Recovering/Resolving]
  - Anxiety [Unknown]
  - Joint swelling [Unknown]
  - Peripheral swelling [Unknown]
  - Joint swelling [Unknown]
  - Sciatica [Unknown]
  - Nodule [Unknown]
  - Lymphadenopathy [Unknown]
  - Back pain [Unknown]
  - Pain [Unknown]

NARRATIVE: CASE EVENT DATE: 20000101
